FAERS Safety Report 23553872 (Version 1)
Quarter: 2024Q1

REPORT INFORMATION
  Report Type: Spontaneous
  Country: CN (occurrence: CN)
  Receive Date: 20240222
  Receipt Date: 20240222
  Transmission Date: 20240410
  Serious: Yes (Hospitalization)
  Sender: FDA-Public Use
  Company Number: CN-PFIZER INC-PV202400023558

PATIENT
  Age: 1 Year
  Sex: Female
  Weight: 10.5 kg

DRUGS (3)
  1. IDARUBICIN HYDROCHLORIDE [Suspect]
     Active Substance: IDARUBICIN HYDROCHLORIDE
     Indication: Acute lymphocytic leukaemia
     Dosage: 4.5 MG, ALTERNATE DAY
     Dates: start: 20240130, end: 20240203
  2. CYTARABINE [Suspect]
     Active Substance: CYTARABINE
     Indication: Acute lymphocytic leukaemia
     Dosage: 46 MG, 2X/DAY
     Dates: start: 20240131, end: 20240205
  3. OMACETAXINE MEPESUCCINATE [Suspect]
     Active Substance: OMACETAXINE MEPESUCCINATE
     Indication: Acute lymphocytic leukaemia
     Dosage: 1.38 MG, 1X/DAY
     Dates: start: 20240130, end: 20240203

REACTIONS (3)
  - Myelosuppression [Recovering/Resolving]
  - Mucocutaneous ulceration [Recovering/Resolving]
  - Sinus tachycardia [Recovering/Resolving]

NARRATIVE: CASE EVENT DATE: 20240131
